FAERS Safety Report 24401438 (Version 2)
Quarter: 2024Q4

REPORT INFORMATION
  Report Type: Spontaneous
  Country: BR (occurrence: BR)
  Receive Date: 20241007
  Receipt Date: 20241010
  Transmission Date: 20250115
  Serious: Yes (Other)
  Sender: NOVO NORDISK
  Company Number: BR-NOVOPROD-1291545

PATIENT
  Age: 546 Month
  Sex: Female

DRUGS (1)
  1. VICTOZA [Suspect]
     Active Substance: LIRAGLUTIDE
     Indication: Weight control
     Dosage: 0.6 MG

REACTIONS (4)
  - Prosthesis implantation [Unknown]
  - Liposuction [Unknown]
  - Product use in unapproved indication [Not Recovered/Not Resolved]
  - Product storage error [Unknown]
